FAERS Safety Report 7504145-9 (Version None)
Quarter: 2011Q2

REPORT INFORMATION
  Report Type: 
  Country: None (occurrence: None)
  Receive Date: 20110525
  Receipt Date: 20110513
  Transmission Date: 20111010
  Serious: Yes (Hospitalization, Other)
  Sender: FDA-Public Use
  Company Number: US-ELI_LILLY_AND_COMPANY-US201008003675

PATIENT
  Sex: Female

DRUGS (12)
  1. FORTEO [Suspect]
     Indication: OSTEOPOROSIS
     Dosage: 20 UG, DAILY (1/D)
     Route: 065
     Dates: start: 20100730
  2. PERCOCET [Concomitant]
     Dosage: UNK, AS NEEDED
  3. BACTRIM [Concomitant]
     Dosage: UNK, DAILY (1/D)
  4. FORTEO [Suspect]
     Dosage: 20 UG, DAILY (1/D)
     Route: 065
  5. COUMADIN [Concomitant]
  6. PREDNISONE [Concomitant]
     Dosage: 60 MG, DAILY (1/D)
  7. WELLBUTRIN [Concomitant]
     Dosage: 200 MG, 2/D
  8. OXYCONTIN [Concomitant]
     Dosage: 80 MG, 2/D
  9. LYRICA [Concomitant]
     Dosage: UNK, 3/D
  10. PULMICORT [Concomitant]
     Dosage: UNK, OTHER
  11. ALBUTEROL SULFATE AUTOHALER [Concomitant]
     Dosage: UNK, AS NEEDED
  12. ATIVAN [Concomitant]
     Dosage: 0.1 MG, AS NEEDED

REACTIONS (12)
  - INCREASED APPETITE [None]
  - PNEUMONIA [None]
  - STAPHYLOCOCCAL INFECTION [None]
  - BACTERIAL DISEASE CARRIER [None]
  - DYSSTASIA [None]
  - BLOOD TEST ABNORMAL [None]
  - PALPITATIONS [None]
  - HEART RATE DECREASED [None]
  - PAIN IN EXTREMITY [None]
  - MALAISE [None]
  - HAEMORRHAGE [None]
  - ARTHRALGIA [None]
